FAERS Safety Report 10354252 (Version 1)
Quarter: 2014Q3

REPORT INFORMATION
  Report Type: Spontaneous
  Country: US (occurrence: US)
  Receive Date: 20140731
  Receipt Date: 20140731
  Transmission Date: 20150326
  Serious: No
  Sender: FDA-Public Use
  Company Number: US-009507513-1407USA012055

PATIENT
  Age: 22 Year
  Sex: Female
  Weight: 53.61 kg

DRUGS (2)
  1. NUVARING [Suspect]
     Active Substance: ETHINYL ESTRADIOL\ETONOGESTREL
     Dosage: 1 DF, Q3W
     Route: 067
     Dates: start: 201405, end: 20140723
  2. NUVARING [Suspect]
     Active Substance: ETHINYL ESTRADIOL\ETONOGESTREL
     Indication: MUSCLE SPASMS
     Dosage: 1 DF, Q3W
     Route: 067
     Dates: start: 201310, end: 201401

REACTIONS (2)
  - Orgasm abnormal [Not Recovered/Not Resolved]
  - Drug administration error [Unknown]

NARRATIVE: CASE EVENT DATE: 201310
